FAERS Safety Report 7826891-X (Version None)
Quarter: 2011Q4

REPORT INFORMATION
  Report Type: 
  Country: None (occurrence: None)
  Receive Date: 20111017
  Receipt Date: 20111004
  Transmission Date: 20120403
  Serious: Yes (Other)
  Sender: FDA-Public Use
  Company Number: DKLU1073242

PATIENT
  Age: 24 Year
  Sex: Male

DRUGS (1)
  1. DESOXYN [Suspect]
     Indication: DRUG ABUSE

REACTIONS (9)
  - DRY MOUTH [None]
  - GINGIVITIS [None]
  - DENTAL CARIES [None]
  - PHARYNGEAL INFLAMMATION [None]
  - POOR PERSONAL HYGIENE [None]
  - DRUG DEPENDENCE [None]
  - PAIN IN JAW [None]
  - BREATH ODOUR [None]
  - TOOTH EROSION [None]
